FAERS Safety Report 7714937-9 (Version None)
Quarter: 2011Q3

REPORT INFORMATION
  Report Type: 
  Country: None (occurrence: None)
  Receive Date: 20110829
  Receipt Date: 20100913
  Transmission Date: 20111222
  Serious: No
  Sender: FDA-Public Use
  Company Number: US-GLAXOSMITHKLINE-A0881359A

PATIENT
  Age: 61 Year
  Sex: Female

DRUGS (1)
  1. ZOVIRAX [Suspect]
     Indication: PRODUCT USED FOR UNKNOWN INDICATION
     Dosage: 400MG UNKNOWN
     Route: 048
     Dates: start: 20090101

REACTIONS (3)
  - MEDICATION ERROR [None]
  - CONFUSIONAL STATE [None]
  - PRODUCT QUALITY ISSUE [None]
